FAERS Safety Report 15764908 (Version 2)
Quarter: 2019Q4

REPORT INFORMATION
  Report Type: Spontaneous
  Country: IR (occurrence: IR)
  Receive Date: 20181227
  Receipt Date: 20191118
  Transmission Date: 20200122
  Serious: Yes (Other)
  Sender: FDA-Public Use
  Company Number: PHHY2018IR193884

PATIENT
  Age: 30 Year
  Sex: Female

DRUGS (1)
  1. GILENYA [Suspect]
     Active Substance: FINGOLIMOD HYDROCHLORIDE
     Indication: RELAPSING-REMITTING MULTIPLE SCLEROSIS
     Dosage: UNK
     Route: 048
     Dates: start: 2016

REACTIONS (6)
  - Monoparesis [Recovering/Resolving]
  - Nystagmus [Recovering/Resolving]
  - Ataxia [Recovering/Resolving]
  - Vertigo [Recovering/Resolving]
  - Paraparesis [Recovering/Resolving]
  - Tumefactive multiple sclerosis [Recovering/Resolving]

NARRATIVE: CASE EVENT DATE: 201702
